FAERS Safety Report 9524783 (Version 1)
Quarter: 2013Q3

REPORT INFORMATION
  Report Type: Spontaneous
  Country: US (occurrence: None)
  Receive Date: 20130912
  Receipt Date: 20130912
  Transmission Date: 20140515
  Serious: Yes (Other)
  Sender: FDA-Public Use
  Company Number: None

PATIENT
  Age: 72 Year
  Sex: Female
  Weight: 81.65 kg

DRUGS (2)
  1. HYDROCODONE [Suspect]
     Indication: BACK PAIN
     Dosage: 1-2 AS NEEDED
     Dates: start: 20130801, end: 20130911
  2. HYDROCODONE [Suspect]
     Indication: BACK INJURY
     Dosage: 1-2 AS NEEDED
     Dates: start: 20130801, end: 20130911

REACTIONS (2)
  - Product formulation issue [None]
  - Drug ineffective [None]
